FAERS Safety Report 5397765-1 (Version None)
Quarter: 2007Q3

REPORT INFORMATION
  Report Type: 
  Country: None (occurrence: None)
  Receive Date: 20070726
  Receipt Date: 20070723
  Transmission Date: 20080115
  Serious: Yes (Death, Hospitalization)
  Sender: FDA-Public Use
  Company Number: B0477715A

PATIENT
  Age: 76 Year
  Sex: Female

DRUGS (6)
  1. ARIXTRA [Suspect]
     Indication: DEEP VEIN THROMBOSIS
     Dosage: 7.5MG PER DAY
     Route: 058
     Dates: start: 20070610, end: 20070601
  2. CHEMOTHERAPY [Concomitant]
     Indication: GLIOBLASTOMA
  3. CORTANCYL [Concomitant]
     Dosage: 160MG PER DAY
     Route: 048
     Dates: start: 20070515
  4. POTASSIUM CHLORIDE [Concomitant]
     Dosage: 1UNIT THREE TIMES PER DAY
     Route: 048
     Dates: start: 20070515
  5. KEPPRA [Concomitant]
     Dosage: 1UNIT THREE TIMES PER DAY
     Route: 048
     Dates: start: 20070515
  6. INIPOMP [Concomitant]
     Dosage: 20MG AT NIGHT
     Route: 048
     Dates: start: 20070515

REACTIONS (3)
  - APHASIA [None]
  - BRAIN HERNIATION [None]
  - CEREBRAL HAEMORRHAGE [None]
